FAERS Safety Report 7289270-2 (Version None)
Quarter: 2011Q1

REPORT INFORMATION
  Report Type: 
  Country: None (occurrence: None)
  Receive Date: 20110211
  Receipt Date: 20110202
  Transmission Date: 20110831
  Serious: Yes (Hospitalization, Other)
  Sender: FDA-Public Use
  Company Number: GB-B.I. PHARMACEUTICALS,INC./RIDGEFIELD-2011-UK-00102UK

PATIENT
  Sex: Male

DRUGS (8)
  1. AMLODIPINE [Suspect]
     Indication: HYPERTENSION
     Dosage: 5 MG
     Route: 048
     Dates: end: 20101221
  2. BENDROFLUAZIDE [Suspect]
     Indication: HYPERTENSION
     Route: 048
     Dates: end: 20101201
  3. PL 00030/0180 SCOPODERM TTS TRANSDERMAL PATCHES 1MG/72HRS [Suspect]
     Indication: SALIVARY HYPERSECRETION
     Dosage: 1DF EVERY 72 HOURS
     Route: 062
     Dates: start: 20101214, end: 20101230
  4. LANSOPRAZOLE [Concomitant]
     Indication: PROPHYLAXIS
     Dosage: 30 MG
     Route: 048
  5. ASPIRIN [Concomitant]
     Indication: ANTIPLATELET THERAPY
     Dosage: 75 MG
     Route: 048
  6. DOCUSATE [Concomitant]
     Indication: CONSTIPATION
     Dosage: 200 MG
     Route: 048
  7. SERETIDE [Concomitant]
     Indication: CHRONIC OBSTRUCTIVE PULMONARY DISEASE
     Dosage: 1DF TWICE DAILY
  8. TIOTROPIUM [Suspect]
     Indication: CHRONIC OBSTRUCTIVE PULMONARY DISEASE
     Dosage: 18 MCG

REACTIONS (5)
  - FALL [None]
  - LOSS OF CONSCIOUSNESS [None]
  - PRODUCTIVE COUGH [None]
  - DRY MOUTH [None]
  - OFF LABEL USE [None]
